FAERS Safety Report 12224192 (Version 1)
Quarter: 2016Q1

REPORT INFORMATION
  Report Type: Spontaneous
  Country: BR (occurrence: CA)
  Receive Date: 20160330
  Receipt Date: 20160330
  Transmission Date: 20160526
  Serious: Yes (Other)
  Sender: FDA-Public Use
  Company Number: BR-HQ SPECIALTY-CA-2016INT000119

PATIENT
  Age: 14 Month
  Sex: Female

DRUGS (5)
  1. CYCLOPHOSPHAMIDE. [Suspect]
     Active Substance: CYCLOPHOSPHAMIDE
     Indication: NEUROBLASTOMA
     Dosage: UNK
  2. TENIPOSIDE. [Suspect]
     Active Substance: TENIPOSIDE
     Indication: NEUROBLASTOMA
     Dosage: UNK
  3. VINCRISTINE [Suspect]
     Active Substance: VINCRISTINE
     Indication: NEUROBLASTOMA
     Dosage: UNK
  4. DOXORUBICIN [Suspect]
     Active Substance: DOXORUBICIN
     Indication: NEUROBLASTOMA
     Dosage: UNK
  5. TENIPOSIDE. [Suspect]
     Active Substance: TENIPOSIDE
     Dosage: 150 MG/M2, DAILY

REACTIONS (8)
  - Hyperferritinaemia [Unknown]
  - Hypofibrinogenaemia [Unknown]
  - Infectious colitis [Not Recovered/Not Resolved]
  - Histiocytosis haematophagic [Unknown]
  - Pyrexia [Not Recovered/Not Resolved]
  - Diarrhoea [Not Recovered/Not Resolved]
  - Hypertriglyceridaemia [Unknown]
  - Pancytopenia [Unknown]
